FAERS Safety Report 12862989 (Version 1)
Quarter: 2016Q4

REPORT INFORMATION
  Report Type: Spontaneous
  Country: CO (occurrence: CO)
  Receive Date: 20161019
  Receipt Date: 20161019
  Transmission Date: 20170207
  Serious: Yes (Hospitalization)
  Sender: FDA-Public Use
  Company Number: CO-CMP PHARMA-2016CMP00036

PATIENT
  Age: 69 Year
  Sex: Male

DRUGS (1)
  1. ISONIAZID/RIFAMPIN/ETHAMBUTOL/PYRAZINAMIDE [Suspect]
     Active Substance: ETHAMBUTOL\ISONIAZID\PYRAZINAMIDE\RIFAMYCIN
     Indication: TUBERCULOSIS
     Dosage: 3 TABLETS, 1X/DAY
     Route: 048

REACTIONS (8)
  - Chills [None]
  - Heart rate increased [None]
  - Pyrexia [None]
  - Influenza like illness [Recovered/Resolved]
  - Malaise [None]
  - Myalgia [None]
  - Vomiting [None]
  - Listless [None]
